FAERS Safety Report 6866092-5 (Version None)
Quarter: 2010Q3

REPORT INFORMATION
  Report Type: 
  Country: None (occurrence: None)
  Receive Date: 20100722
  Receipt Date: 20100716
  Transmission Date: 20110219
  Serious: Yes (Other)
  Sender: FDA-Public Use
  Company Number: SG-B.I. PHARMACEUTICALS,INC./RIDGEFIELD-2010-CS-00650MD

PATIENT
  Sex: Male

DRUGS (6)
  1. MICARDIS [Suspect]
     Indication: HYPERTENSION
     Dosage: 80 MG
     Route: 048
     Dates: start: 20030801
  2. GLUCOPHAGE [Concomitant]
     Dosage: 1700 MG
     Route: 048
     Dates: start: 20030701
  3. LOVASTATIN [Concomitant]
     Dosage: 20 MG
     Route: 048
     Dates: start: 20040401
  4. NIFLEX (NIFEDIPINE 20MG/ATENOLOL 50MG) [Concomitant]
     Dosage: NIFEDIPINE 20MG/ATENOLOL 50MG, DAILY DOSE:20MG/50MG
     Dates: start: 19980101
  5. MINIDIAB 5MG [Concomitant]
     Dosage: 5 MG
     Dates: start: 20041001
  6. ASPIRIN [Concomitant]
     Dosage: 100 MG
     Dates: start: 20040601

REACTIONS (1)
  - THYROID CANCER [None]
